FAERS Safety Report 5618303-1 (Version None)
Quarter: 2008Q1

REPORT INFORMATION
  Report Type: 
  Country: None (occurrence: None)
  Receive Date: 20080206
  Receipt Date: 20080206
  Transmission Date: 20080703
  Serious: Yes (Disabling)
  Sender: FDA-Public Use
  Company Number: None

PATIENT
  Age: 50 Year
  Sex: Female
  Weight: 58.9676 kg

DRUGS (1)
  1. CHANTIX [Suspect]
     Indication: SMOKING CESSATION THERAPY
     Dosage: 1 TABLET 2 TIMES A DAY PO
     Route: 048
     Dates: start: 20061211, end: 20070211

REACTIONS (7)
  - DELUSION [None]
  - DISTURBANCE IN ATTENTION [None]
  - FEAR [None]
  - LOSS OF EMPLOYMENT [None]
  - MIDDLE INSOMNIA [None]
  - MOOD SWINGS [None]
  - PARANOIA [None]
